FAERS Safety Report 6424457-X (Version None)
Quarter: 2009Q4

REPORT INFORMATION
  Report Type: 
  Country: None (occurrence: None)
  Receive Date: 20091103
  Receipt Date: 20091102
  Transmission Date: 20100525
  Serious: Yes (Hospitalization)
  Sender: FDA-Public Use
  Company Number: FR-BRISTOL-MYERS SQUIBB COMPANY-14638423

PATIENT
  Age: 62 Year
  Sex: Female

DRUGS (6)
  1. AMIKLIN INJ [Suspect]
     Indication: LUNG DISORDER
     Route: 042
     Dates: start: 20090302, end: 20090317
  2. TAVANIC [Suspect]
     Indication: LUNG DISORDER
     Route: 042
     Dates: start: 20090226, end: 20090303
  3. AUGMENTIN [Suspect]
     Indication: LUNG DISORDER
     Dates: start: 20090226, end: 20090302
  4. TAZOCILLINE [Suspect]
     Indication: LUNG DISORDER
     Route: 042
     Dates: start: 20090302, end: 20090326
  5. VANCOMYCIN [Suspect]
     Indication: LUNG DISORDER
     Route: 042
     Dates: start: 20090318, end: 20090326
  6. TRIFLUCAN [Suspect]
     Indication: LUNG DISORDER
     Route: 048
     Dates: start: 20090304, end: 20090326

REACTIONS (1)
  - DRUG RASH WITH EOSINOPHILIA AND SYSTEMIC SYMPTOMS [None]
